FAERS Safety Report 25595840 (Version 1)
Quarter: 2025Q3

REPORT INFORMATION
  Report Type: Spontaneous
  Country: US (occurrence: US)
  Receive Date: 20250723
  Receipt Date: 20250723
  Transmission Date: 20251021
  Serious: Yes (Death, Other)
  Sender: BAXTER
  Company Number: US-BAXTER-2025BAX018402

PATIENT
  Age: 57 Year
  Sex: Male
  Weight: 77 kg

DRUGS (1)
  1. SODIUM CHLORIDE [Suspect]
     Active Substance: SODIUM CHLORIDE
     Indication: Medication dilution
     Route: 065
     Dates: start: 202506

REACTIONS (2)
  - Death [Fatal]
  - Device connection issue [Unknown]

NARRATIVE: CASE EVENT DATE: 20250624
